FAERS Safety Report 20481550 (Version 1)
Quarter: 2022Q1

REPORT INFORMATION
  Report Type: Report from Study
  Country: FR (occurrence: None)
  Receive Date: 20220216
  Receipt Date: 20220216
  Transmission Date: 20220424
  Serious: Yes (Other)
  Sender: FDA-Public Use
  Company Number: FR-IQVIA-20064700373360001_335

PATIENT
  Age: 62 Year
  Sex: Male
  Weight: 80 kg

DRUGS (13)
  1. BINTRAFUSP ALFA [Suspect]
     Active Substance: BINTRAFUSP ALFA
     Indication: Non-small cell lung cancer
     Route: 042
     Dates: start: 20190719, end: 20210223
  2. BINTRAFUSP ALFA [Suspect]
     Active Substance: BINTRAFUSP ALFA
     Route: 042
     Dates: start: 20210406, end: 20211125
  3. CLOBETASOL PROPIONATE [Concomitant]
     Active Substance: CLOBETASOL PROPIONATE
     Indication: Skin toxicity
     Dosage: APPLICATION
     Route: 003
     Dates: start: 20200124
  4. CLOBETASOL PROPIONATE [Concomitant]
     Active Substance: CLOBETASOL PROPIONATE
     Route: 061
     Dates: start: 20200124
  5. DIPROSONE [Concomitant]
     Active Substance: BETAMETHASONE DIPROPIONATE
     Indication: Rash pruritic
     Dosage: 0.05 PERCENT APPLICATION
     Route: 061
     Dates: start: 20191217
  6. DIPROSONE [Concomitant]
     Active Substance: BETAMETHASONE DIPROPIONATE
     Indication: Skin toxicity
  7. GLYCERIN\MINERAL OIL\PETROLATUM [Concomitant]
     Active Substance: GLYCERIN\MINERAL OIL\PETROLATUM
     Indication: Rash pruritic
     Dosage: UNKNOWN APPLICATION
     Route: 061
     Dates: start: 20191217
  8. GLYCERIN\MINERAL OIL\PETROLATUM [Concomitant]
     Active Substance: GLYCERIN\MINERAL OIL\PETROLATUM
     Indication: Skin toxicity
  9. BILASTINE [Concomitant]
     Active Substance: BILASTINE
     Indication: Rash pruritic
     Route: 048
     Dates: start: 20191217
  10. BILASTINE [Concomitant]
     Active Substance: BILASTINE
     Indication: Skin toxicity
  11. PREDNISONE [Concomitant]
     Active Substance: PREDNISONE
     Indication: Skin toxicity
     Route: 048
     Dates: start: 20200206, end: 20200212
  12. PREDNISONE [Concomitant]
     Active Substance: PREDNISONE
     Indication: Pruritus
     Route: 048
     Dates: start: 20200213, end: 20200219
  13. PREDNISONE [Concomitant]
     Active Substance: PREDNISONE
     Route: 048
     Dates: start: 20200220, end: 20200310

REACTIONS (1)
  - Lichen planus [Not Recovered/Not Resolved]

NARRATIVE: CASE EVENT DATE: 20200421
